FAERS Safety Report 5815997-2 (Version None)
Quarter: 2008Q3

REPORT INFORMATION
  Report Type: 
  Country: None (occurrence: None)
  Receive Date: 20080721
  Receipt Date: 20080711
  Transmission Date: 20090109
  Serious: Yes (Hospitalization)
  Sender: FDA-Public Use
  Company Number: PHHY2008US11608

PATIENT
  Sex: Male
  Weight: 69 kg

DRUGS (7)
  1. EXJADE [Suspect]
     Indication: IRON OVERLOAD
     Dosage: 1375 MG/DAY
     Route: 048
     Dates: start: 20080609, end: 20080618
  2. NEORAL [Concomitant]
     Dosage: 125 MG, BID
     Dates: start: 20080326
  3. BACTRIM DS [Concomitant]
     Dosage: UNK
     Route: 048
     Dates: start: 20080314
  4. SPORANOX [Concomitant]
     Dosage: 200 MG, BID
     Route: 048
     Dates: start: 20080227
  5. ACYCLOVIR [Concomitant]
     Dosage: 200 MG, BID
     Route: 048
     Dates: start: 20080314
  6. AMBIEN [Concomitant]
     Dosage: 10 MG, QHS
     Route: 048
     Dates: start: 20080314
  7. LEVAQUIN [Concomitant]
     Dosage: 500 MG/DAY
     Route: 048

REACTIONS (10)
  - BLOOD CREATININE INCREASED [None]
  - BLOOD GLUCOSE INCREASED [None]
  - BLOOD SODIUM DECREASED [None]
  - CHILLS [None]
  - HEADACHE [None]
  - LIVER FUNCTION TEST ABNORMAL [None]
  - PLATELET COUNT DECREASED [None]
  - PYREXIA [None]
  - RASH GENERALISED [None]
  - WHITE BLOOD CELL COUNT DECREASED [None]
